FAERS Safety Report 18421179 (Version 4)
Quarter: 2020Q4

REPORT INFORMATION
  Report Type: Report from Study
  Country: GB (occurrence: GB)
  Receive Date: 20201023
  Receipt Date: 20201214
  Transmission Date: 20210114
  Serious: Yes (Other)
  Sender: FDA-Public Use
  Company Number: NVSC2020GB284471

PATIENT
  Sex: Female

DRUGS (1)
  1. KISQALI [Suspect]
     Active Substance: RIBOCICLIB
     Indication: BREAST CANCER
     Dosage: UNK
     Route: 065
     Dates: start: 20201019

REACTIONS (9)
  - Muscle twitching [Unknown]
  - Sinus tachycardia [Unknown]
  - Blood pressure increased [Unknown]
  - Arrhythmia [Unknown]
  - Electrocardiogram abnormal [Unknown]
  - Peripheral swelling [Unknown]
  - Cough [Unknown]
  - Heart rate increased [Unknown]
  - Chest discomfort [Unknown]

NARRATIVE: CASE EVENT DATE: 202010
